FAERS Safety Report 8153430-9 (Version None)
Quarter: 2012Q1

REPORT INFORMATION
  Report Type: 
  Country: None (occurrence: None)
  Receive Date: 20120215
  Receipt Date: 20120202
  Transmission Date: 20120608
  Serious: Yes (Congenital Anomaly)
  Sender: FDA-Public Use
  Company Number: CIO12002477

PATIENT
  Sex: Female

DRUGS (1)
  1. BISMUTH SUBSALICYLATE [Suspect]
     Indication: VOMITING IN PREGNANCY
     Dosage: ORAL
     Route: 048

REACTIONS (3)
  - NEURAL TUBE DEFECT [None]
  - ABORTION INDUCED [None]
  - MATERNAL DRUGS AFFECTING FOETUS [None]
